FAERS Safety Report 4752950-4 (Version None)
Quarter: 2005Q3

REPORT INFORMATION
  Report Type: 
  Country: None (occurrence: None)
  Receive Date: 20050823
  Receipt Date: 20050810
  Transmission Date: 20060218
  Serious: Yes (Hospitalization)
  Sender: FDA-Public Use
  Company Number: USA040361820

PATIENT
  Age: 36 Year
  Sex: Male

DRUGS (3)
  1. HUMULIN N [Suspect]
     Indication: DIABETES MELLITUS
     Dosage: 25 U/3 DAY
     Dates: start: 19840101
  2. HUMALOG [Suspect]
     Indication: DIABETES MELLITUS
  3. HUMULIN R [Suspect]
     Indication: DIABETES MELLITUS

REACTIONS (7)
  - BLOOD GLUCOSE INCREASED [None]
  - DIABETES MELLITUS INADEQUATE CONTROL [None]
  - DRY EYE [None]
  - GASTROENTERITIS VIRAL [None]
  - HYPOAESTHESIA [None]
  - NASOPHARYNGITIS [None]
  - PARAESTHESIA [None]
